FAERS Safety Report 14780413 (Version 1)
Quarter: 2018Q2

REPORT INFORMATION
  Report Type: Spontaneous
  Country: JP (occurrence: JP)
  Receive Date: 20180419
  Receipt Date: 20180419
  Transmission Date: 20180711
  Serious: Yes (Hospitalization)
  Sender: FDA-Public Use
  Company Number: JP-PFIZER INC-2018154975

PATIENT

DRUGS (1)
  1. RHEUMATREX [Suspect]
     Active Substance: METHOTREXATE SODIUM
     Dosage: UNSPECIFIED DOSE, EVERY FRIDAY (WEEKLY)
     Route: 048

REACTIONS (3)
  - Contrast media allergy [Unknown]
  - Nausea [Unknown]
  - Vomiting [Unknown]
